FAERS Safety Report 14413633 (Version 6)
Quarter: 2018Q4

REPORT INFORMATION
  Report Type: Report from Study
  Country: US (occurrence: US)
  Receive Date: 20180119
  Receipt Date: 20181112
  Transmission Date: 20190204
  Serious: Yes (Hospitalization, Other)
  Sender: FDA-Public Use
  Company Number: US-ACTELION-A-NJ2017-154347

PATIENT
  Age: 69 Year
  Sex: Female
  Weight: 63.49 kg

DRUGS (3)
  1. REVATIO [Concomitant]
     Active Substance: SILDENAFIL CITRATE
  2. VELETRI [Suspect]
     Active Substance: EPOPROSTENOL
     Dosage: 27.5 NG/KG, PER MIN
     Route: 042
     Dates: start: 2008
  3. VELETRI [Suspect]
     Active Substance: EPOPROSTENOL
     Indication: PULMONARY ARTERIAL HYPERTENSION
     Dosage: 28 NG/KG, PER MIN
     Route: 042

REACTIONS (20)
  - Catheter management [Unknown]
  - Paracentesis [Unknown]
  - Oedema peripheral [Unknown]
  - Temperature intolerance [Unknown]
  - Rash [Unknown]
  - Exposure to communicable disease [Unknown]
  - Diarrhoea [Unknown]
  - Dyspnoea [Unknown]
  - Anaemia [Unknown]
  - Flushing [Unknown]
  - Heart rate decreased [Unknown]
  - Weight decreased [Unknown]
  - Device occlusion [Unknown]
  - Device alarm issue [Unknown]
  - Asthenia [Unknown]
  - Pain in jaw [Unknown]
  - Intra-abdominal fluid collection [Unknown]
  - Bone marrow granuloma [Unknown]
  - Headache [Unknown]
  - Sinusitis [Unknown]
